FAERS Safety Report 15656711 (Version 1)
Quarter: 2018Q4

REPORT INFORMATION
  Report Type: Spontaneous
  Country: AU (occurrence: AU)
  Receive Date: 20181126
  Receipt Date: 20181126
  Transmission Date: 20190205
  Serious: Yes (Other)
  Sender: FDA-Public Use
  Company Number: AU-ACTELION-A-CH2018-181909

PATIENT
  Age: 67 Year
  Sex: Female

DRUGS (2)
  1. SILDENAFIL. [Suspect]
     Active Substance: SILDENAFIL
     Indication: SYSTEMIC SCLERODERMA
     Dosage: 25 MG, TID
     Route: 048
     Dates: start: 201809
  2. OPSUMIT [Suspect]
     Active Substance: MACITENTAN
     Indication: SYSTEMIC SCLERODERMA
     Dosage: 10 MG, OD
     Route: 048
     Dates: start: 20180928

REACTIONS (1)
  - Vomiting [Unknown]
